FAERS Safety Report 9392853 (Version 1)
Quarter: 2013Q3

REPORT INFORMATION
  Report Type: Spontaneous
  Country: US (occurrence: US)
  Receive Date: 20130710
  Receipt Date: 20130710
  Transmission Date: 20140515
  Serious: No
  Sender: FDA-Public Use
  Company Number: US-BAYER-2013-083080

PATIENT
  Age: 87 Year
  Sex: Female
  Weight: 57 kg

DRUGS (5)
  1. ALEVE TABLET [Suspect]
     Indication: ARTHRITIS
     Dosage: 2 DF, PRN
  2. VITAMIN D NOS [Concomitant]
  3. LISINOPRIL [Concomitant]
  4. VITAMIN C [Concomitant]
  5. STOOL SOFTENER [Concomitant]

REACTIONS (3)
  - Vision blurred [Not Recovered/Not Resolved]
  - Dizziness [Not Recovered/Not Resolved]
  - Constipation [Recovered/Resolved]
